FAERS Safety Report 25628917 (Version 2)
Quarter: 2025Q4

REPORT INFORMATION
  Report Type: Spontaneous
  Country: US (occurrence: US)
  Receive Date: 20250731
  Receipt Date: 20251127
  Transmission Date: 20260118
  Serious: Yes (Life-Threatening, Hospitalization, Other)
  Sender: ELI LILLY AND COMPANY
  Company Number: US-ELI_LILLY_AND_COMPANY-US202507026312

PATIENT
  Age: 56 Year
  Sex: Female
  Weight: 126.98 kg

DRUGS (53)
  1. TRULICITY [Suspect]
     Active Substance: DULAGLUTIDE
     Indication: Disease risk factor
     Dosage: 0.75 MG, WEEKLY (1/W)
     Route: 065
     Dates: start: 20200826, end: 20201026
  2. TRULICITY [Suspect]
     Active Substance: DULAGLUTIDE
     Indication: Weight control
     Dosage: 1.5 MG, WEEKLY (1/W)
     Route: 065
     Dates: start: 20201102, end: 20210405
  3. TRULICITY [Suspect]
     Active Substance: DULAGLUTIDE
     Indication: Diabetes mellitus
     Dosage: 3 MG, WEEKLY (1/W)
     Route: 065
     Dates: start: 20210525, end: 20211227
  4. OZEMPIC [Suspect]
     Active Substance: SEMAGLUTIDE
     Indication: Disease risk factor
     Dosage: UNK UNK, UNKNOWN
     Route: 065
     Dates: start: 20220111
  5. OZEMPIC [Suspect]
     Active Substance: SEMAGLUTIDE
     Indication: Weight control
     Dosage: 0.25 MG, WEEKLY (1/W)
     Route: 065
     Dates: start: 20220215, end: 20221109
  6. OZEMPIC [Suspect]
     Active Substance: SEMAGLUTIDE
     Indication: Diabetes mellitus
  7. FARXIGA [Concomitant]
     Active Substance: DAPAGLIFLOZIN PROPANEDIOL
     Indication: Diabetes mellitus
     Dosage: UNK UNK, UNKNOWN
     Route: 065
     Dates: start: 20201113, end: 20231115
  8. GLIMEPIRIDE [Concomitant]
     Active Substance: GLIMEPIRIDE
     Indication: Diabetes mellitus
     Dosage: UNK UNK, UNKNOWN
     Route: 065
     Dates: start: 20200603, end: 20201113
  9. HUMALOG [Concomitant]
     Active Substance: INSULIN LISPRO
     Indication: Diabetes mellitus
     Dosage: UNK UNK, UNKNOWN
     Route: 065
     Dates: start: 20230516, end: 20230623
  10. LANTUS SOLOSTAR [Concomitant]
     Active Substance: INSULIN GLARGINE
     Indication: Diabetes mellitus
     Dosage: UNK UNK, UNKNOWN
     Route: 065
     Dates: start: 20220513, end: 20230622
  11. METFORMIN [Concomitant]
     Active Substance: METFORMIN HYDROCHLORIDE
     Indication: Diabetes mellitus
     Dosage: UNK UNK, UNKNOWN
     Route: 065
     Dates: start: 20180208, end: 20230315
  12. ALBUTEROL SULFATE [Concomitant]
     Active Substance: ALBUTEROL SULFATE
     Indication: Asthma
     Dosage: UNK UNK, UNKNOWN
     Route: 065
     Dates: start: 20210301
  13. ALPRAZOLAM [Concomitant]
     Active Substance: ALPRAZOLAM
     Indication: Anxiety
     Dosage: UNK UNK, UNKNOWN
     Route: 065
     Dates: start: 20200116
  14. AMLODIPINE BESYLATE [Concomitant]
     Active Substance: AMLODIPINE BESYLATE
     Indication: Hypertension
     Dosage: UNK UNK, UNKNOWN
     Route: 065
     Dates: start: 20190930, end: 20200115
  15. ATORVASTATIN [Concomitant]
     Active Substance: ATORVASTATIN
     Indication: Blood cholesterol increased
     Dosage: UNK UNK, UNKNOWN
     Route: 065
     Dates: start: 20180718, end: 20211101
  16. BELVIQ [Concomitant]
     Active Substance: LORCASERIN HYDROCHLORIDE
     Indication: Weight control
     Dosage: UNK UNK, UNKNOWN
     Route: 065
  17. BUMETANIDE [Concomitant]
     Active Substance: BUMETANIDE
     Indication: Chronic kidney disease
     Dosage: UNK UNK, UNKNOWN
     Route: 065
     Dates: start: 20200817, end: 20231024
  18. BYSTOLIC [Concomitant]
     Active Substance: NEBIVOLOL HYDROCHLORIDE
     Indication: Hypertension
     Dosage: UNK UNK, UNKNOWN
     Route: 065
  19. CARAFATE [Concomitant]
     Active Substance: SUCRALFATE
     Indication: Abdominal pain upper
     Dosage: UNK UNK, UNKNOWN
     Route: 065
     Dates: start: 20191204
  20. CETIRIZINE [Concomitant]
     Active Substance: CETIRIZINE HYDROCHLORIDE
     Indication: Hypersensitivity
     Dosage: UNK UNK, UNKNOWN
     Route: 065
     Dates: start: 20210912, end: 20230505
  21. CYCLOBENZAPRINE [Concomitant]
     Active Substance: CYCLOBENZAPRINE
     Indication: Muscle relaxant therapy
     Dosage: UNK UNK, UNKNOWN
     Route: 065
     Dates: start: 20210607, end: 20230505
  22. DULERA [Concomitant]
     Active Substance: FORMOTEROL FUMARATE DIHYDRATE\MOMETASONE FUROATE
     Indication: Asthma
     Dosage: UNK UNK, UNKNOWN
     Route: 065
     Dates: start: 20201013, end: 20230901
  23. FAMOTIDINE [Concomitant]
     Active Substance: FAMOTIDINE
     Indication: Abdominal pain upper
     Dosage: UNK UNK, UNKNOWN
     Route: 065
     Dates: start: 20200323
  24. FUROSEMIDE [Concomitant]
     Active Substance: FUROSEMIDE
     Indication: Hypertension
     Dosage: UNK UNK, UNKNOWN
     Route: 065
     Dates: start: 20220513
  25. HYDRALAZINE [Concomitant]
     Active Substance: HYDRALAZINE HYDROCHLORIDE
     Indication: Hypertension
     Dosage: UNK UNK, UNKNOWN
     Route: 065
  26. HYDROCHLOROTHIAZIDE [Concomitant]
     Active Substance: HYDROCHLOROTHIAZIDE
     Indication: Hypertension
     Dosage: UNK UNK, UNKNOWN
     Route: 065
     Dates: start: 20190723, end: 20191217
  27. IPRATROPIUM BROMIDE AND ALBUTEROL SULFATE [Concomitant]
     Active Substance: ALBUTEROL SULFATE\IPRATROPIUM BROMIDE
     Indication: Asthma
     Dosage: UNK UNK, UNKNOWN
     Route: 065
     Dates: start: 20210309
  28. ISOSORBIDE DINITRATE [Concomitant]
     Active Substance: ISOSORBIDE DINITRATE
     Indication: Chest pain
     Dosage: UNK UNK, UNKNOWN
     Route: 065
     Dates: start: 20201112
  29. MINERAL OIL\PETROLATUM [Concomitant]
     Active Substance: MINERAL OIL\PETROLATUM
     Indication: Dry eye
     Dosage: UNK UNK, UNKNOWN
     Route: 065
     Dates: start: 20210116
  30. LAMOTRIGINE [Concomitant]
     Active Substance: LAMOTRIGINE
     Indication: Hypoaesthesia
     Dosage: UNK UNK, UNKNOWN
     Route: 065
     Dates: start: 20231020
  31. LIDOCAINE [Concomitant]
     Active Substance: LIDOCAINE
     Indication: Pain
     Dosage: UNK, UNKNOWN
     Route: 065
     Dates: start: 20180501, end: 20230119
  32. LORATADINE [Concomitant]
     Active Substance: LORATADINE
     Indication: Hypersensitivity
     Dosage: UNK UNK, UNKNOWN
     Route: 065
  33. MAGNESIUM CITRATE [Concomitant]
     Active Substance: MAGNESIUM CITRATE
     Indication: Laxative supportive care
     Dosage: UNK UNK, UNKNOWN
     Route: 065
     Dates: start: 20180509
  34. MELOXICAM [Concomitant]
     Active Substance: MELOXICAM
     Indication: Inflammation
     Dosage: UNK UNK, UNKNOWN
     Route: 065
     Dates: start: 20181115, end: 20230119
  35. NEBIVOLOL [Concomitant]
     Active Substance: NEBIVOLOL
     Indication: Hypertension
     Dosage: UNK UNK, UNKNOWN
     Route: 065
     Dates: start: 20211101, end: 20230513
  36. OMEPRAZOLE [Concomitant]
     Active Substance: OMEPRAZOLE
     Indication: Gastrooesophageal reflux disease
     Dosage: UNK UNK, UNKNOWN
     Route: 065
     Dates: start: 20180424, end: 20231121
  37. PREDNISONE [Concomitant]
     Active Substance: PREDNISONE
     Indication: Asthma
     Dosage: UNK UNK, UNKNOWN
     Route: 065
     Dates: start: 20210922
  38. PROCHLORPERAZINE [Concomitant]
     Active Substance: PROCHLORPERAZINE
     Indication: Anxiety
     Dosage: UNK UNK, UNKNOWN
     Route: 065
     Dates: start: 20230818, end: 20231206
  39. PROMETHAZINE [Concomitant]
     Active Substance: PROMETHAZINE HYDROCHLORIDE
     Indication: Nausea
     Dosage: UNK UNK, UNKNOWN
     Route: 065
     Dates: start: 20180616, end: 20220703
  40. PROMETHAZINE [Concomitant]
     Active Substance: PROMETHAZINE HYDROCHLORIDE
     Indication: Vomiting
  41. RANITIDINE [Concomitant]
     Active Substance: RANITIDINE
     Indication: Dyspepsia
     Dosage: UNK UNK, UNKNOWN
     Route: 065
     Dates: start: 20170419, end: 20180208
  42. ROSUVASTATIN [Concomitant]
     Active Substance: ROSUVASTATIN
     Indication: Blood cholesterol increased
     Dosage: UNK UNK, UNKNOWN
     Route: 065
     Dates: start: 20190821, end: 20230612
  43. SPIRONOLACTONE [Concomitant]
     Active Substance: SPIRONOLACTONE
     Indication: Hypertension
     Dosage: UNK UNK, UNKNOWN
     Route: 065
     Dates: start: 20200814
  44. SUCRALFATE [Concomitant]
     Active Substance: SUCRALFATE
     Indication: Abdominal pain upper
     Dosage: UNK UNK, UNKNOWN
     Route: 065
     Dates: start: 20191204, end: 20231206
  45. TIZANIDINE [Concomitant]
     Active Substance: TIZANIDINE
     Indication: Muscle spasms
     Dosage: UNK, UNKNOWN
     Route: 065
     Dates: start: 20221110
  46. TRIFLURIDINE [Concomitant]
     Active Substance: TRIFLURIDINE
     Indication: Eye infection
     Dosage: UNK UNK, UNKNOWN
     Route: 065
     Dates: start: 20211116, end: 20221103
  47. VALACYCLOVIR [Concomitant]
     Active Substance: VALACYCLOVIR HYDROCHLORIDE
     Indication: Skin disorder
     Dosage: UNK UNK, UNKNOWN
     Route: 065
     Dates: start: 20220107, end: 20231210
  48. VENTOLIN HFA [Concomitant]
     Active Substance: ALBUTEROL SULFATE
     Indication: Asthma
     Dosage: UNK UNK, UNKNOWN
     Route: 065
     Dates: start: 20200115, end: 20200928
  49. VITAMIN D2 [Concomitant]
     Active Substance: ERGOCALCIFEROL
     Indication: Supplementation therapy
     Dosage: UNK, UNKNOWN
     Route: 065
     Dates: start: 20210301, end: 20231105
  50. XIIDRA [Concomitant]
     Active Substance: LIFITEGRAST
     Indication: Dry eye
     Dosage: UNK UNK, UNKNOWN
     Route: 065
     Dates: start: 20210225, end: 20211105
  51. BENADRYL [Concomitant]
     Active Substance: DIPHENHYDRAMINE HYDROCHLORIDE
     Indication: Hypersensitivity
     Dosage: UNK UNK, UNKNOWN
     Route: 065
     Dates: start: 20150901
  52. PEPCID [Concomitant]
     Active Substance: FAMOTIDINE
     Indication: Dyspepsia
     Dosage: UNK UNK, UNKNOWN
     Route: 065
     Dates: start: 20211101
  53. VITAMIN B [Concomitant]
     Active Substance: VITAMIN B
     Indication: Supplementation therapy
     Dosage: UNK UNK, UNKNOWN
     Route: 065
     Dates: start: 20251015

REACTIONS (9)
  - Dehydration [Unknown]
  - Constipation [Recovered/Resolved]
  - Impaired gastric emptying [Recovered/Resolved]
  - Nausea [Recovered/Resolved]
  - Vomiting [Recovered/Resolved]
  - Diarrhoea [Recovered/Resolved]
  - Abdominal pain [Recovered/Resolved]
  - Abdominal distension [Unknown]
  - Gastrointestinal disorder [Unknown]

NARRATIVE: CASE EVENT DATE: 20210104
